FAERS Safety Report 17641069 (Version 1)
Quarter: 2020Q2

REPORT INFORMATION
  Report Type: Report from Study
  Country: None (occurrence: JP)
  Receive Date: 20200407
  Receipt Date: 20200407
  Transmission Date: 20200713
  Serious: Yes (Other)
  Sender: FDA-Public Use
  Company Number: JP-ABBVIE-18K-087-3117248-00

PATIENT
  Age: 85 Year
  Sex: Female
  Weight: 45.1 kg

DRUGS (6)
  1. IMBRUVICA [Suspect]
     Active Substance: IBRUTINIB
     Route: 048
     Dates: start: 20160820, end: 20160823
  2. TRANSAMIN [Concomitant]
     Active Substance: TRANEXAMIC ACID
     Indication: SUBCUTANEOUS HAEMATOMA
     Dosage: NO.OF SEPARATE DOSAGES 3?NO.OF UNITS IN THE INTERVAL 1
     Route: 048
     Dates: start: 20180628, end: 20180704
  3. IMBRUVICA [Suspect]
     Active Substance: IBRUTINIB
     Route: 048
     Dates: start: 20160901
  4. FEBURIC [Suspect]
     Active Substance: FEBUXOSTAT
     Indication: PROPHYLAXIS
     Dosage: DOSAGE FORM: UNSPECIFIED
     Route: 048
     Dates: start: 20160815, end: 20170110
  5. FEBURIC [Suspect]
     Active Substance: FEBUXOSTAT
     Dosage: DOSAGE FORM: UNSPECIFIED
     Route: 048
     Dates: start: 20170622
  6. IMBRUVICA [Suspect]
     Active Substance: IBRUTINIB
     Indication: CHRONIC LYMPHOCYTIC LEUKAEMIA REFRACTORY
     Route: 048
     Dates: start: 20160816, end: 20160819

REACTIONS (4)
  - Petechiae [Unknown]
  - Platelet count decreased [Recovered/Resolved]
  - Purpura [Unknown]
  - White blood cell count increased [Recovered/Resolved]

NARRATIVE: CASE EVENT DATE: 20160817
